FAERS Safety Report 7653634-5 (Version None)
Quarter: 2011Q3

REPORT INFORMATION
  Report Type: 
  Country: None (occurrence: None)
  Receive Date: 20110803
  Receipt Date: 20110803
  Transmission Date: 20111222
  Serious: Yes (Life-Threatening)
  Sender: FDA-Public Use
  Company Number: None

PATIENT
  Age: 46 Year
  Sex: Male
  Weight: 118.84 kg

DRUGS (1)
  1. RASBURICASE [Suspect]
     Indication: BLOOD URIC ACID
     Dates: start: 20110708, end: 20110708

REACTIONS (2)
  - CHEST DISCOMFORT [None]
  - DYSPNOEA [None]
